FAERS Safety Report 4694722-5 (Version None)
Quarter: 2005Q2

REPORT INFORMATION
  Report Type: 
  Country: None (occurrence: None)
  Receive Date: 20050617
  Receipt Date: 20050607
  Transmission Date: 20051028
  Serious: Yes (Other)
  Sender: FDA-Public Use
  Company Number: 200510082BCC

PATIENT
  Age: 62 Year
  Sex: Female
  Weight: 58.9676 kg

DRUGS (2)
  1. ALEVE [Suspect]
     Indication: ARTHRITIS
     Dosage: 1760 MG, TOTAL DAILY ORAL; 660 MG, TOTAL DAILY ORAL
     Route: 048
     Dates: start: 20040101, end: 20041220
  2. ALEVE [Suspect]
     Indication: ARTHRITIS
     Dosage: 1760 MG, TOTAL DAILY ORAL; 660 MG, TOTAL DAILY ORAL
     Route: 048
     Dates: start: 20041221

REACTIONS (5)
  - BLOOD PRESSURE SYSTOLIC INCREASED [None]
  - CHEST DISCOMFORT [None]
  - HEART RATE INCREASED [None]
  - LOSS OF CONSCIOUSNESS [None]
  - PALPITATIONS [None]
